FAERS Safety Report 23443990 (Version 1)
Quarter: 2024Q1

REPORT INFORMATION
  Report Type: Spontaneous
  Country: US (occurrence: US)
  Receive Date: 20240125
  Receipt Date: 20240125
  Transmission Date: 20240409
  Serious: No
  Sender: FDA-Public Use
  Company Number: US-BAYER-2024A013126

PATIENT
  Age: 13 Year
  Sex: Male

DRUGS (2)
  1. KOVALTRY [Suspect]
     Active Substance: ANTIHEMOPHILIC FACTOR, HUMAN RECOMBINANT
     Indication: Factor VIII deficiency
     Dosage: 2400 IU
     Route: 042
     Dates: start: 202211, end: 202211
  2. KOVALTRY [Suspect]
     Active Substance: ANTIHEMOPHILIC FACTOR, HUMAN RECOMBINANT
     Indication: Factor VIII deficiency
     Dosage: 1450 IU
     Route: 042
     Dates: start: 202211

REACTIONS (1)
  - Epistaxis [None]

NARRATIVE: CASE EVENT DATE: 20240117
